FAERS Safety Report 4289805-8 (Version None)
Quarter: 2004Q1

REPORT INFORMATION
  Report Type: 
  Country: None (occurrence: None)
  Receive Date: 20040210
  Receipt Date: 20040203
  Transmission Date: 20041129
  Serious: Yes (Hospitalization)
  Sender: FDA-Public Use
  Company Number: FR-GLAXOSMITHKLINE-B0321981A

PATIENT
  Age: 69 Year
  Sex: Male

DRUGS (10)
  1. AUGMENTIN '125' [Suspect]
     Dosage: 1G THREE TIMES PER DAY
     Route: 048
     Dates: start: 20040101, end: 20040118
  2. ZYLORIC [Suspect]
     Route: 048
     Dates: start: 20030615, end: 20040118
  3. CIFLOX [Suspect]
     Route: 048
     Dates: start: 20040101, end: 20040118
  4. FONZYLANE [Concomitant]
  5. PARIET [Concomitant]
  6. DAFLON [Concomitant]
  7. DIGOXIN [Concomitant]
  8. VITAMIN B1 B6 [Concomitant]
  9. DUPHALAC [Concomitant]
  10. LASILIX [Concomitant]

REACTIONS (6)
  - DRUG INTERACTION [None]
  - PURPURA [None]
  - RASH ERYTHEMATOUS [None]
  - SKIN DESQUAMATION [None]
  - TOXIC EPIDERMAL NECROLYSIS [None]
  - TOXIC SKIN ERUPTION [None]
